FAERS Safety Report 15022656 (Version 1)
Quarter: 2018Q2

REPORT INFORMATION
  Report Type: Spontaneous
  Country: IT (occurrence: IT)
  Receive Date: 20180618
  Receipt Date: 20180618
  Transmission Date: 20180711
  Serious: Yes (Other)
  Sender: FDA-Public Use
  Company Number: IT-PFIZER INC-2018242400

PATIENT
  Age: 49 Year
  Sex: Female

DRUGS (7)
  1. TAVOR (LORAZEPAM) [Suspect]
     Active Substance: LORAZEPAM
     Dosage: 1 DF, 1X/DAY
     Route: 048
     Dates: start: 20180101, end: 20180427
  2. NOZINAN [Suspect]
     Active Substance: LEVOMEPROMAZINE
     Dosage: 1 DF, 1X/DAY
     Route: 048
     Dates: start: 20180101, end: 20180427
  3. EUTIROX [Concomitant]
     Active Substance: LEVOTHYROXINE SODIUM
  4. VALDORM (FLURAZEPAM HYDROCHLORIDE) [Suspect]
     Active Substance: FLURAZEPAM HYDROCHLORIDE
     Dosage: 1 DF, 1X/DAY
     Route: 048
     Dates: start: 20180101, end: 20180427
  5. JANUMET [Concomitant]
     Active Substance: METFORMIN HYDROCHLORIDE\SITAGLIPTIN PHOSPHATE
  6. DEPAKIN CHRONO /01294701/ [Suspect]
     Active Substance: VALPROIC ACID
     Dosage: 2 DF, 1X/DAY
     Route: 048
     Dates: start: 20180101, end: 20180427
  7. ACTOS [Concomitant]
     Active Substance: PIOGLITAZONE HYDROCHLORIDE

REACTIONS (1)
  - Syncope [Recovering/Resolving]

NARRATIVE: CASE EVENT DATE: 20180427
